FAERS Safety Report 8599116-8 (Version None)
Quarter: 2012Q3

REPORT INFORMATION
  Report Type: 
  Country: None (occurrence: None)
  Receive Date: 20120816
  Receipt Date: 20120809
  Transmission Date: 20120928
  Serious: Yes (Other)
  Sender: FDA-Public Use
  Company Number: CHPA2012US017931

PATIENT
  Sex: Female

DRUGS (1)
  1. MAALOX ADV MAXIMUM STRENGTH ANTACID/ANTIGAS CHEWABLE [Suspect]
     Indication: ABDOMINAL PAIN UPPER
     Dosage: 1 DF, PRN
     Route: 048
     Dates: start: 19510101

REACTIONS (4)
  - OFF LABEL USE [None]
  - ABORTION SPONTANEOUS [None]
  - MATERNAL EXPOSURE DURING PREGNANCY [None]
  - THERAPEUTIC RESPONSE UNEXPECTED [None]
